FAERS Safety Report 5695724-2 (Version None)
Quarter: 2008Q2

REPORT INFORMATION
  Report Type: 
  Country: None (occurrence: None)
  Receive Date: 20080403
  Receipt Date: 20080325
  Transmission Date: 20081010
  Serious: Yes (Other)
  Sender: FDA-Public Use
  Company Number: 2008007353

PATIENT
  Age: 4 Year
  Sex: Male
  Weight: 16.3 kg

DRUGS (3)
  1. BENYLIN [Suspect]
  2. DIMETAPP [Suspect]
  3. TRIAMINIC COLD + COUGH (CHLORPHENAMINE MALEATE, DEXTROMETHORPHAN HYDRO [Suspect]
     Indication: NASOPHARYNGITIS
     Dosage: ORAL
     Route: 048

REACTIONS (1)
  - CONVULSION [None]
